FAERS Safety Report 19865266 (Version 8)
Quarter: 2022Q4

REPORT INFORMATION
  Report Type: Report from Study
  Country: CA (occurrence: CA)
  Receive Date: 20210921
  Receipt Date: 20221109
  Transmission Date: 20230112
  Serious: Yes (Other)
  Sender: FDA-Public Use
  Company Number: CA-EISAI MEDICAL RESEARCH-EC-2021-099505

PATIENT
  Age: 52 Year
  Sex: Male
  Weight: 140 kg

DRUGS (20)
  1. RABEPRAZOLE [Suspect]
     Active Substance: RABEPRAZOLE
     Indication: Secondary progressive multiple sclerosis
     Route: 048
  2. AMLODIPINE BESYLATE [Suspect]
     Active Substance: AMLODIPINE BESYLATE
     Indication: Secondary progressive multiple sclerosis
     Route: 048
  3. BACLOFEN [Suspect]
     Active Substance: BACLOFEN
     Indication: Product used for unknown indication
     Route: 048
  4. BACLOFEN [Suspect]
     Active Substance: BACLOFEN
  5. BISOPROLOL [Suspect]
     Active Substance: BISOPROLOL
     Indication: Secondary progressive multiple sclerosis
     Dosage: UNKNOWN DOSE AND FREQUENCY
     Route: 048
  6. DOXEPIN HYDROCHLORIDE [Suspect]
     Active Substance: DOXEPIN HYDROCHLORIDE
     Indication: Product used for unknown indication
  7. GABAPENTIN [Suspect]
     Active Substance: GABAPENTIN
     Indication: Product used for unknown indication
  8. LORAZEPAM [Suspect]
     Active Substance: LORAZEPAM
     Indication: Product used for unknown indication
     Dosage: UNKNOWN DOSE AND FREQUENCY
     Route: 048
  9. PRAMIPEXOLE [Suspect]
     Active Substance: PRAMIPEXOLE
     Indication: Secondary progressive multiple sclerosis
     Route: 048
  10. REBIF [Suspect]
     Active Substance: INTERFERON BETA-1A
     Indication: Product used for unknown indication
     Dosage: UNKNOWN DOSE AND FREQUENCY
     Route: 058
  11. ROSUVASTATIN CALCIUM [Suspect]
     Active Substance: ROSUVASTATIN CALCIUM
     Indication: Product used for unknown indication
     Route: 048
  12. TAMSULOSIN [Suspect]
     Active Substance: TAMSULOSIN
     Indication: Secondary progressive multiple sclerosis
     Dosage: UNKNOWN DOSE AND FREQUENCY
     Route: 048
  13. TECFIDERA [Suspect]
     Active Substance: DIMETHYL FUMARATE
     Indication: Product used for unknown indication
     Dosage: UNKNOWN DOSE AND FREQUENCY
  14. DALFAMPRIDINE [Suspect]
     Active Substance: DALFAMPRIDINE
     Indication: Product used for unknown indication
     Dosage: UNKNOWN DOSE AND FREQUENCY
  15. ALLOPURINOL [Concomitant]
     Active Substance: ALLOPURINOL
     Indication: Product used for unknown indication
     Route: 048
  16. ASPIRIN [Concomitant]
     Active Substance: ASPIRIN
  17. ATIVAN [Concomitant]
     Active Substance: LORAZEPAM
  18. CALCIUM [Concomitant]
     Active Substance: CALCIUM
  19. VITAMIN D3 [Concomitant]
     Active Substance: CHOLECALCIFEROL
  20. CODEINE [Concomitant]
     Active Substance: CODEINE

REACTIONS (24)
  - Anxiety [Recovered/Resolved]
  - Ataxia [Recovered/Resolved]
  - Balance disorder [Recovered/Resolved]
  - Bradycardia [Recovered/Resolved]
  - Central nervous system lesion [Recovered/Resolved]
  - Dysarthria [Recovered/Resolved]
  - Erectile dysfunction [Recovered/Resolved]
  - Fall [Recovered/Resolved]
  - Gait spastic [Recovered/Resolved]
  - Hypertonic bladder [Recovered/Resolved]
  - Hypoaesthesia [Recovered/Resolved]
  - Insomnia [Recovered/Resolved]
  - Memory impairment [Recovered/Resolved]
  - Micturition urgency [Recovered/Resolved]
  - Monoparesis [Recovered/Resolved]
  - Movement disorder [Recovered/Resolved]
  - Multiple sclerosis relapse [Recovered/Resolved]
  - Muscle spasticity [Unknown]
  - Pollakiuria [Recovered/Resolved]
  - Relapsing-remitting multiple sclerosis [Recovered/Resolved]
  - Needle fatigue [Recovered/Resolved]
  - Nocturia [Recovered/Resolved]
  - Pain [Recovered/Resolved]
  - Dizziness [Recovered/Resolved]

NARRATIVE: CASE EVENT DATE: 20210501
